FAERS Safety Report 19791537 (Version 1)
Quarter: 2021Q3

REPORT INFORMATION
  Report Type: Spontaneous
  Country: US (occurrence: US)
  Receive Date: 20210906
  Receipt Date: 20210906
  Transmission Date: 20211014
  Serious: Yes (Other)
  Sender: FDA-Public Use
  Company Number: US-PFIZER INC-2021759872

PATIENT
  Age: 24 Year
  Sex: Female

DRUGS (4)
  1. MORPHINE SULFATE. [Suspect]
     Active Substance: MORPHINE SULFATE
     Indication: INGUINAL HERNIA REPAIR
     Dosage: 5 MG IN 5 ML
     Route: 008
  2. LIDOCAINE HCL [Suspect]
     Active Substance: LIDOCAINE HYDROCHLORIDE
     Indication: INGUINAL HERNIA REPAIR
     Dosage: 2 ML
     Route: 008
  3. LIDOCAINE HCL [Suspect]
     Active Substance: LIDOCAINE HYDROCHLORIDE
     Dosage: 27 ML
     Route: 008
  4. EPINEPHRINE. [Suspect]
     Active Substance: EPINEPHRINE
     Indication: INGUINAL HERNIA REPAIR
     Dosage: 1.5 %(1:200000)
     Route: 008

REACTIONS (3)
  - Respiratory depression [Recovered/Resolved]
  - Somnolence [Recovered/Resolved]
  - Bradypnoea [Recovered/Resolved]
